FAERS Safety Report 8807344 (Version 1)
Quarter: 2012Q4

REPORT INFORMATION
  Report Type: Report from Study
  Country: FR (occurrence: FR)
  Receive Date: 20120925
  Receipt Date: 20120925
  Transmission Date: 20130627
  Serious: Yes (Hospitalization)
  Sender: FDA-Public Use
  Company Number: FR-ROCHE-1128798

PATIENT
  Age: 38 Year
  Sex: Female
  Weight: 64 kg

DRUGS (3)
  1. ROACTEMRA [Suspect]
     Indication: RHEUMATOID ARTHRITIS
     Route: 042
     Dates: start: 20100607
  2. METHOTREXATE [Suspect]
     Indication: RHEUMATOID ARTHRITIS
     Route: 065
     Dates: start: 20100709
  3. CORTANCYL [Concomitant]
     Route: 048

REACTIONS (4)
  - Alopecia [Not Recovered/Not Resolved]
  - Hepatocellular injury [Recovered/Resolved]
  - Pleurisy [Recovered/Resolved]
  - Weight decreased [Recovered/Resolved]
